FAERS Safety Report 10982334 (Version 2)
Quarter: 2015Q2

REPORT INFORMATION
  Report Type: Spontaneous
  Country: US (occurrence: US)
  Receive Date: 20150403
  Receipt Date: 20150609
  Transmission Date: 20150821
  Serious: Yes (Hospitalization, Other)
  Sender: FDA-Public Use
  Company Number: US-PFIZER INC-2015110208

PATIENT
  Sex: Female

DRUGS (4)
  1. MORPHINE [Concomitant]
     Active Substance: MORPHINE
     Dosage: 15 MG, 4X/DAY
     Route: 048
     Dates: start: 20141225
  2. MORPHINE [Concomitant]
     Active Substance: MORPHINE
     Dosage: 150 MG, 3X/DAY
     Route: 048
  3. LYRICA [Suspect]
     Active Substance: PREGABALIN
     Indication: FIBROMYALGIA
     Dosage: 100 MG, 3X/DAY (EVERY 8 HOURS)
     Route: 048
  4. MORPHINE [Concomitant]
     Active Substance: MORPHINE
     Dosage: 30 MG, EVERY 8 HOURS
     Route: 048

REACTIONS (5)
  - Blood pressure increased [Not Recovered/Not Resolved]
  - Toxicity to various agents [Unknown]
  - Drug dependence [Unknown]
  - Hypersensitivity [Unknown]
  - Anger [Unknown]

NARRATIVE: CASE EVENT DATE: 20141225
